FAERS Safety Report 4420524-0 (Version None)
Quarter: 2004Q3

REPORT INFORMATION
  Report Type: 
  Country: None (occurrence: None)
  Receive Date: 20040809
  Receipt Date: 20040323
  Transmission Date: 20050211
  Serious: No
  Sender: FDA-Public Use
  Company Number: US-GLAXOSMITHKLINE-A0504055A

PATIENT
  Age: 87 Year
  Sex: Female

DRUGS (6)
  1. PAXIL CR [Suspect]
     Indication: DEPRESSION
     Dosage: 12.5MG PER DAY
     Route: 048
     Dates: start: 20040302
  2. XANAX [Concomitant]
  3. NORVASC [Concomitant]
  4. HYZAAR [Concomitant]
  5. TOPROL-XL [Concomitant]
  6. COUMADIN [Concomitant]

REACTIONS (1)
  - DRUG INEFFECTIVE [None]
